FAERS Safety Report 11765739 (Version 1)
Quarter: 2015Q4

REPORT INFORMATION
  Report Type: Spontaneous
  Country: US (occurrence: US)
  Receive Date: 20151120
  Receipt Date: 20151120
  Transmission Date: 20160304
  Serious: No
  Sender: FDA-Public Use
  Company Number: US-ELI_LILLY_AND_COMPANY-US201408004304

PATIENT
  Sex: Female

DRUGS (5)
  1. FORTEO [Suspect]
     Active Substance: TERIPARATIDE
     Indication: OSTEOPOROSIS
     Dosage: UNK
     Dates: start: 20140721, end: 20140808
  2. RECLAST [Concomitant]
     Active Substance: ZOLEDRONIC ACID
  3. VITAMIN D                          /00107901/ [Concomitant]
     Active Substance: ERGOCALCIFEROL
  4. PROLIA [Concomitant]
     Active Substance: DENOSUMAB
     Dosage: UNK
     Dates: start: 201405
  5. BONIVA [Concomitant]
     Active Substance: IBANDRONATE SODIUM

REACTIONS (3)
  - Blood calcium increased [Unknown]
  - Blood pressure decreased [Unknown]
  - Panic attack [Unknown]

NARRATIVE: CASE EVENT DATE: 20140728
